FAERS Safety Report 4285114-1 (Version None)
Quarter: 2004Q1

REPORT INFORMATION
  Report Type: 
  Country: None (occurrence: None)
  Receive Date: 20040204
  Receipt Date: 20040109
  Transmission Date: 20041129
  Serious: Yes (Hospitalization)
  Sender: FDA-Public Use
  Company Number: FR-GLAXOSMITHKLINE-B0319476A

PATIENT
  Age: 42 Year
  Sex: Female
  Weight: 65 kg

DRUGS (12)
  1. ZOPHREN [Suspect]
     Indication: PROPHYLAXIS OF NAUSEA AND VOMITING
     Dosage: 8MG TWICE PER DAY
     Route: 042
     Dates: start: 20031105
  2. CLAFORAN [Suspect]
     Dosage: 2G SIX TIMES PER DAY
     Route: 042
     Dates: start: 20031107, end: 20031112
  3. TIBERAL [Suspect]
     Dosage: 1G TWICE PER DAY
     Route: 042
     Dates: start: 20031107, end: 20031112
  4. MOPRAL [Suspect]
     Dosage: 20MG PER DAY
     Route: 048
     Dates: start: 20031105
  5. LOVENOX [Suspect]
     Dosage: 40MG PER DAY
     Route: 048
     Dates: start: 20031105, end: 20031108
  6. PERFALGAN [Suspect]
     Dosage: 1G FOUR TIMES PER DAY
     Route: 042
     Dates: start: 20031105
  7. PRIMPERAN TAB [Suspect]
     Dosage: 1G FOUR TIMES PER DAY
     Route: 042
     Dates: start: 20031105
  8. VALPROATE SODIUM [Suspect]
     Dosage: 500MG FOUR TIMES PER DAY
     Route: 048
     Dates: start: 20031105
  9. MORPHINE [Suspect]
     Dates: start: 20031105
  10. VANCOMYCIN [Concomitant]
     Dates: start: 20031107
  11. RIFATER [Concomitant]
     Route: 048
     Dates: start: 20031107
  12. DANAPAROIDE SODIQUE [Concomitant]
     Dates: start: 20031108

REACTIONS (4)
  - DISEASE RECURRENCE [None]
  - EMPYEMA [None]
  - MENINGIOMA [None]
  - THROMBOCYTOPENIA [None]
